FAERS Safety Report 5392476-0 (Version None)
Quarter: 2007Q3

REPORT INFORMATION
  Report Type: 
  Country: None (occurrence: None)
  Receive Date: 20070720
  Receipt Date: 20070717
  Transmission Date: 20080115
  Serious: Yes (Death, Hospitalization)
  Sender: FDA-Public Use
  Company Number: US-BRISTOL-MYERS SQUIBB COMPANY-13833173

PATIENT
  Age: 53 Year
  Sex: Female
  Weight: 63 kg

DRUGS (15)
  1. CETUXIMAB [Suspect]
     Indication: COLORECTAL CANCER METASTATIC
     Route: 042
     Dates: start: 20070212, end: 20070604
  2. COUMADIN [Suspect]
     Indication: ANTICOAGULANT THERAPY
     Route: 048
     Dates: start: 20070401
  3. BEVACIZUMAB [Suspect]
     Indication: COLORECTAL CANCER METASTATIC
     Route: 042
     Dates: start: 20070212, end: 20070529
  4. FLUOROURACIL [Suspect]
     Indication: COLORECTAL CANCER METASTATIC
     Route: 042
     Dates: start: 20070212, end: 20070531
  5. LEUCOVORIN CALCIUM [Suspect]
     Indication: COLORECTAL CANCER METASTATIC
     Route: 042
     Dates: start: 20070212, end: 20070529
  6. PROZAC [Concomitant]
     Indication: DEPRESSION
     Route: 048
     Dates: start: 19810101
  7. SYNTHROID [Concomitant]
     Indication: HYPOTHYROIDISM
     Route: 048
     Dates: start: 19810101
  8. VICODIN [Concomitant]
     Indication: PAIN
     Route: 048
     Dates: start: 20070312
  9. COMPAZINE [Concomitant]
     Indication: ANTIEMETIC SUPPORTIVE CARE
     Route: 048
     Dates: start: 20070423
  10. LOVENOX [Concomitant]
     Indication: PROPHYLAXIS
     Route: 058
     Dates: start: 20070626, end: 20070629
  11. LEVOTHYROXINE SODIUM [Concomitant]
     Indication: HYPOTHYROIDISM
     Route: 042
     Dates: start: 20070626, end: 20070629
  12. METOCLOPRAMIDE HCL INJ [Concomitant]
     Indication: NAUSEA
     Route: 042
     Dates: start: 20070625, end: 20070629
  13. PROTONIX [Concomitant]
     Indication: PROPHYLAXIS
     Route: 042
     Dates: start: 20070624, end: 20070629
  14. DILAUDID [Concomitant]
     Indication: PAIN
     Route: 042
     Dates: start: 20070625, end: 20070629
  15. LEVAQUIN [Concomitant]
     Indication: URINARY TRACT INFECTION
     Route: 042
     Dates: start: 20070624, end: 20070629

REACTIONS (5)
  - ACUTE RESPIRATORY DISTRESS SYNDROME [None]
  - INTESTINAL PERFORATION [None]
  - MALIGNANT NEOPLASM PROGRESSION [None]
  - RESPIRATORY FAILURE [None]
  - SEPSIS [None]
